FAERS Safety Report 17369726 (Version 1)
Quarter: 2020Q3

REPORT INFORMATION
  Report Type: Report from Study
  Country: AT (occurrence: AT)
  Receive Date: 20200205
  Receipt Date: 20200205
  Transmission Date: 20201104
  Serious: Yes (Death, Other)
  Sender: FDA-Public Use
  Company Number: AT-TEVA-2020-AT-1181825

PATIENT
  Age: 52 Year
  Sex: Male

DRUGS (3)
  1. POLATUZUMAB VEDOTIN. [Suspect]
     Active Substance: POLATUZUMAB VEDOTIN
     Indication: DIFFUSE LARGE B-CELL LYMPHOMA REFRACTORY
     Route: 065
     Dates: end: 20190916
  2. RITUXIMAB. [Suspect]
     Active Substance: RITUXIMAB
     Indication: DIFFUSE LARGE B-CELL LYMPHOMA REFRACTORY
     Dosage: UNK UNK, UNKNOWN FREQ.
     Route: 065
     Dates: end: 20190916
  3. BENDAMUSTINE HYDROCHLORIDE. [Suspect]
     Active Substance: BENDAMUSTINE HYDROCHLORIDE
     Indication: DIFFUSE LARGE B-CELL LYMPHOMA REFRACTORY
     Route: 042
     Dates: end: 20190916

REACTIONS (8)
  - Diffuse large B-cell lymphoma [Fatal]
  - Anaemia [Unknown]
  - Disease progression [Fatal]
  - Endocarditis staphylococcal [Unknown]
  - Herpes simplex reactivation [Unknown]
  - Thrombocytopenia [Unknown]
  - Product use in unapproved indication [Unknown]
  - Hypomagnesaemia [Unknown]

NARRATIVE: CASE EVENT DATE: 20191001
